FAERS Safety Report 6477640-1 (Version None)
Quarter: 2009Q4

REPORT INFORMATION
  Report Type: 
  Country: None (occurrence: None)
  Receive Date: 20091204
  Receipt Date: 20091204
  Transmission Date: 20100525
  Serious: Yes (Life-Threatening, Other)
  Sender: FDA-Public Use
  Company Number: None

PATIENT
  Age: 65 Year
  Sex: Female
  Weight: 92.5338 kg

DRUGS (2)
  1. LIPITOR [Suspect]
     Indication: BLOOD CHOLESTEROL INCREASED
     Dosage: 20MG 1X DAILY AT BEDTIME
     Dates: start: 20080415, end: 20091027
  2. LIPITOR [Concomitant]

REACTIONS (3)
  - HEPATOMEGALY [None]
  - NAUSEA [None]
  - PAIN [None]
